FAERS Safety Report 11829420 (Version 1)
Quarter: 2015Q4

REPORT INFORMATION
  Report Type: Spontaneous
  Country: US (occurrence: US)
  Receive Date: 20151211
  Receipt Date: 20151211
  Transmission Date: 20160305
  Serious: No
  Sender: FDA-Public Use
  Company Number: US-BAUSCH-BL-2015-014097

PATIENT
  Age: 67 Year
  Sex: Male

DRUGS (2)
  1. XENAZINE [Suspect]
     Active Substance: TETRABENAZINE
     Indication: DYSKINESIA
     Route: 048
     Dates: start: 20141220
  2. XENAZINE [Suspect]
     Active Substance: TETRABENAZINE
     Route: 048
     Dates: start: 20141231, end: 20150609

REACTIONS (5)
  - Aggression [Unknown]
  - Anger [Unknown]
  - Off label use [Unknown]
  - Agitation [Unknown]
  - Frustration [Unknown]

NARRATIVE: CASE EVENT DATE: 20141231
